FAERS Safety Report 6883067-0 (Version None)
Quarter: 2010Q3

REPORT INFORMATION
  Report Type: 
  Country: None (occurrence: None)
  Receive Date: 20100727
  Receipt Date: 20100721
  Transmission Date: 20110219
  Serious: Yes (Death, Hospitalization)
  Sender: FDA-Public Use
  Company Number: A-CH2010-38298

PATIENT
  Age: 13 Year
  Sex: Male

DRUGS (2)
  1. ZAVESCA [Suspect]
     Indication: NIEMANN-PICK DISEASE
     Dosage: 100 MG, QD, ORAL
     Route: 048
     Dates: start: 20070901, end: 20100401
  2. ZAVESCA [Suspect]
     Indication: NIEMANN-PICK DISEASE
     Dosage: 100 MG, QD, ORAL
     Route: 048
     Dates: start: 20100401, end: 20100501

REACTIONS (1)
  - CONVULSION [None]
